FAERS Safety Report 15953721 (Version 1)
Quarter: 2019Q1

REPORT INFORMATION
  Report Type: Report from Study
  Country: ZA (occurrence: ZA)
  Receive Date: 20190212
  Receipt Date: 20190212
  Transmission Date: 20190417
  Serious: Yes (Other)
  Sender: FDA-Public Use
  Company Number: ZA-SA-2019SA009996

PATIENT
  Age: 53 Year
  Sex: Male

DRUGS (4)
  1. PREXUM [Concomitant]
     Active Substance: PERINDOPRIL ERBUMINE
     Dosage: 4 MG, QD/ AT BREAKFAST
     Dates: start: 20180920
  2. ADCO-SIMVASTATIN [Concomitant]
     Active Substance: SIMVASTATIN
     Dosage: 10 MG, HS/ AT BED TIME
     Dates: start: 20180920
  3. INSULIN GLARGINE [Suspect]
     Active Substance: INSULIN GLARGINE
     Dosage: 12 IU, QD/ AT BED TIME
     Dates: start: 20180209
  4. INSULIN GLULISINE [Suspect]
     Active Substance: INSULIN GLULISINE
     Dosage: 6 IU, TID AT BL(BEFORE LUNCH), BS (BEFORE SUPPER), BB (BEFORE BREAKFAST)
     Dates: start: 20180919

REACTIONS (7)
  - Renal failure [Not Recovered/Not Resolved]
  - Unevaluable event [Not Recovered/Not Resolved]
  - Oropharyngeal pain [Unknown]
  - Blood glucose fluctuation [Unknown]
  - Glycosylated haemoglobin increased [Unknown]
  - Influenza [Unknown]
  - Product dose omission [Unknown]
